FAERS Safety Report 6987371-7 (Version None)
Quarter: 2010Q3

REPORT INFORMATION
  Report Type: 
  Country: None (occurrence: None)
  Receive Date: 20100913
  Receipt Date: 20100830
  Transmission Date: 20110219
  Serious: Yes (Hospitalization)
  Sender: FDA-Public Use
  Company Number: TCI2010A03439

PATIENT
  Age: 75 Year
  Sex: Male

DRUGS (10)
  1. ACTOS [Suspect]
     Indication: TYPE 2 DIABETES MELLITUS
     Dosage: 30 MG (30 MG, 1-2)
     Route: 048
     Dates: start: 20030304
  2. MP-513 (CODE NOT BROKEN) (ORAL ANTIDIABETICS) [Suspect]
     Indication: TYPE 2 DIABETES MELLITUS
     Dosage: MP-513 OR PLACEBO (1 IN 1 D)
     Route: 048
     Dates: start: 20100513
  3. MP-513 (ORAL ANTIDIABETICS) [Suspect]
     Indication: TYPE 2 DIABETES MELLITUS
     Dosage: 20 MG (20 MG, 1 IN 1 D)
     Route: 048
     Dates: start: 20100513
  4. MARZULENE S (LEVOGLUTAMIDE, SODIUM GUALENATE) [Concomitant]
  5. RIIDAI MM (DRUGS FOR FUNCTIONAL GASTROINTEST DISORDER) [Concomitant]
  6. GASTROM (ECABET MONOSODIUM) [Concomitant]
  7. TOCONIJUST (TOCOPHERYL NICOTINATE) [Concomitant]
  8. MECOBAMIDE [Concomitant]
  9. KETOPROFEN [Concomitant]
  10. BENIDIPINE HYDROCHLORIDE TABLETS (BENIDIPINE HYDROCHLORIDE) [Concomitant]

REACTIONS (2)
  - BODY TEMPERATURE INCREASED [None]
  - UPPER RESPIRATORY TRACT INFLAMMATION [None]
